FAERS Safety Report 21870887 (Version 1)
Quarter: 2023Q1

REPORT INFORMATION
  Report Type: Spontaneous
  Country: US (occurrence: US)
  Receive Date: 20230117
  Receipt Date: 20230117
  Transmission Date: 20230417
  Serious: Yes (Other)
  Sender: FDA-Public Use
  Company Number: US-MYLANLABS-2023M1003043

PATIENT
  Sex: Female

DRUGS (1)
  1. CELEBREX [Suspect]
     Active Substance: CELECOXIB
     Indication: Arthritis
     Dosage: UNK, ONCE A DAY
     Route: 065

REACTIONS (3)
  - Suspected counterfeit product [Unknown]
  - Arthritis [Recovered/Resolved]
  - Diarrhoea [Recovered/Resolved]
